FAERS Safety Report 9040170 (Version 1)
Quarter: 2013Q1

REPORT INFORMATION
  Report Type: Report from Study
  Country: US (occurrence: US)
  Receive Date: 20130129
  Receipt Date: 20130129
  Transmission Date: 20140127
  Serious: No
  Sender: FDA-Public Use
  Company Number: US-ABBOTT-12P-163-0900478-00

PATIENT
  Sex: Female
  Weight: 76.27 kg

DRUGS (12)
  1. HUMIRA 40 MG/0.8 ML PEN [Suspect]
     Indication: RHEUMATOID ARTHRITIS
     Dates: start: 20110919, end: 20111222
  2. HUMIRA 40 MG/0.8 ML PEN [Suspect]
     Indication: ANKYLOSING SPONDYLITIS
  3. RAGLAN [Concomitant]
     Indication: GASTROOESOPHAGEAL REFLUX DISEASE
  4. PRILOSEC [Concomitant]
     Indication: GASTROOESOPHAGEAL REFLUX DISEASE
  5. SYNTHROID [Concomitant]
     Indication: HYPOTHYROIDISM
  6. REMERON [Concomitant]
     Indication: DEPRESSION
  7. AMBIEN [Concomitant]
     Indication: INSOMNIA
  8. XANAX [Concomitant]
     Indication: ANXIETY
  9. BENECAR [Concomitant]
     Indication: HYPERTENSION
  10. SINGULAIR [Concomitant]
     Indication: ASTHMA
  11. PULMOCORT [Concomitant]
     Indication: ASTHMA
  12. ALBUTEROL [Concomitant]
     Indication: ASTHMA

REACTIONS (1)
  - Sinusitis [Not Recovered/Not Resolved]
